FAERS Safety Report 7861081-6 (Version None)
Quarter: 2011Q4

REPORT INFORMATION
  Report Type: 
  Country: None (occurrence: None)
  Receive Date: 20111026
  Receipt Date: 20111019
  Transmission Date: 20120403
  Serious: Yes (Hospitalization, Other)
  Sender: FDA-Public Use
  Company Number: 2011SP019411

PATIENT
  Age: 34 Year
  Sex: Female
  Weight: 89.8122 kg

DRUGS (14)
  1. ZYRTEC [Concomitant]
  2. NUVARING [Suspect]
  3. ZOMIG [Concomitant]
  4. TOPAMAX [Concomitant]
  5. TRICOR [Concomitant]
  6. EFFEXOR [Concomitant]
  7. NUVARING [Suspect]
     Indication: CONTRACEPTION
     Dates: start: 20050801
  8. NUVARING [Suspect]
     Indication: MENORRHAGIA
     Dates: start: 20050801
  9. NUVARING [Suspect]
     Indication: MENSTRUAL CYCLE MANAGEMENT
     Dates: start: 20050801
  10. NUVARING [Suspect]
     Indication: ENDOMETRIOSIS
     Dates: start: 20050801
  11. NUVARING [Suspect]
     Indication: CONTRACEPTION
     Dates: start: 20090201, end: 20090515
  12. NUVARING [Suspect]
     Indication: MENORRHAGIA
     Dates: start: 20090201, end: 20090515
  13. NUVARING [Suspect]
     Indication: MENSTRUAL CYCLE MANAGEMENT
     Dates: start: 20090201, end: 20090515
  14. NUVARING [Suspect]
     Indication: ENDOMETRIOSIS
     Dates: start: 20090201, end: 20090515

REACTIONS (36)
  - PULMONARY EMBOLISM [None]
  - NON-CARDIAC CHEST PAIN [None]
  - DEEP VEIN THROMBOSIS [None]
  - TACHYCARDIA [None]
  - ADENOMYOSIS [None]
  - OROPHARYNGEAL PAIN [None]
  - ANXIETY [None]
  - MUSCULOSKELETAL CHEST PAIN [None]
  - MITRAL VALVE INCOMPETENCE [None]
  - TRICUSPID VALVE INCOMPETENCE [None]
  - COSTOCHONDRITIS [None]
  - SINUSITIS [None]
  - CYST RUPTURE [None]
  - RHINITIS ALLERGIC [None]
  - INSOMNIA [None]
  - OVARIAN CYST [None]
  - NIGHTMARE [None]
  - STRESS [None]
  - PYREXIA [None]
  - EJECTION FRACTION DECREASED [None]
  - PLEURISY [None]
  - INTERNATIONAL NORMALISED RATIO INCREASED [None]
  - PULMONARY ARTERY THROMBOSIS [None]
  - GASTROOESOPHAGEAL REFLUX DISEASE [None]
  - LOSS OF EMPLOYMENT [None]
  - TONSILLAR HYPERTROPHY [None]
  - ACUTE SINUSITIS [None]
  - DEPRESSION [None]
  - DIASTOLIC DYSFUNCTION [None]
  - STATUS MIGRAINOSUS [None]
  - MUSCLE SPASMS [None]
  - RENAL DISORDER [None]
  - INFLUENZA [None]
  - FIBRIN D DIMER INCREASED [None]
  - INTERNATIONAL NORMALISED RATIO DECREASED [None]
  - BRAIN NATRIURETIC PEPTIDE INCREASED [None]
